FAERS Safety Report 8870907 (Version 1)
Quarter: 2012Q4

REPORT INFORMATION
  Report Type: 
  Country: CA (occurrence: CA)
  Receive Date: 20121029
  Receipt Date: 20121029
  Transmission Date: 20130627
  Serious: Yes (Other)
  Sender: FDA-Public Use
  Company Number: PHHY2012CA096457

PATIENT
  Age: 75 Year
  Sex: Female
  Weight: 58.96 kg

DRUGS (7)
  1. ACLASTA [Suspect]
     Route: 042
  2. ATORVASTATIN [Concomitant]
  3. CALCIUM [Concomitant]
  4. PANTOPRAZOLE [Concomitant]
  5. PRO-AAS EC [Concomitant]
  6. VITAMIN D [Concomitant]
  7. VITAMIN E [Concomitant]

REACTIONS (10)
  - Arrhythmia [Not Recovered/Not Resolved]
  - Atrial fibrillation [Not Recovered/Not Resolved]
  - Hypertension [Not Recovered/Not Resolved]
  - Gastrointestinal pain [Not Recovered/Not Resolved]
  - Abdominal distension [Not Recovered/Not Resolved]
  - Anxiety [Not Recovered/Not Resolved]
  - Gastrooesophageal reflux disease [Not Recovered/Not Resolved]
  - Insomnia [Not Recovered/Not Resolved]
  - Pruritus [Not Recovered/Not Resolved]
  - Dyspepsia [Not Recovered/Not Resolved]
